FAERS Safety Report 14757716 (Version 1)
Quarter: 2018Q2

REPORT INFORMATION
  Report Type: Spontaneous
  Country: CA (occurrence: CA)
  Receive Date: 20180413
  Receipt Date: 20180413
  Transmission Date: 20180711
  Serious: Yes (Hospitalization, Other)
  Sender: FDA-Public Use
  Company Number: CA-PFIZER INC-2018148043

PATIENT
  Age: 61 Year
  Sex: Female
  Weight: 54 kg

DRUGS (25)
  1. DEPO-MEDROL [Concomitant]
     Active Substance: METHYLPREDNISOLONE ACETATE
     Dosage: 80 MG/ML, SINGLE (VIAL 1 ML)
     Dates: start: 20171207, end: 20171207
  2. PREDNISONE. [Concomitant]
     Active Substance: PREDNISONE
     Dosage: 4 DF, UNK
  3. PREDNISONE. [Concomitant]
     Active Substance: PREDNISONE
     Dosage: 2.5 MG, UNK
  4. SULFASALAZINE. [Concomitant]
     Active Substance: SULFASALAZINE
     Dosage: 1 G, 2X/DAY
  5. PREDNISONE. [Concomitant]
     Active Substance: PREDNISONE
     Dosage: 8 DF, UNK
  6. PREDNISONE. [Concomitant]
     Active Substance: PREDNISONE
     Dosage: 2 DF, UNK
  7. PREDNISONE. [Concomitant]
     Active Substance: PREDNISONE
     Dosage: 2 DF, UNK
  8. SULFASALAZINE. [Concomitant]
     Active Substance: SULFASALAZINE
     Dosage: 3 DF, 2X/DAY
  9. PREDNISONE. [Concomitant]
     Active Substance: PREDNISONE
     Dosage: 6 DF, UNK
  10. PREDNISONE. [Concomitant]
     Active Substance: PREDNISONE
     Dosage: 10 MG, UNK (THEN 7.5 MG, THEN 5 MG OVER 3 WEEKS, THEN STOP)
  11. PLAQUENIL [Concomitant]
     Active Substance: HYDROXYCHLOROQUINE SULFATE
     Dosage: 2 DF, 1X/DAY (FOR 6 MONTH 30)
     Dates: start: 20171010
  12. NAPROXEN /00256202/ [Concomitant]
     Active Substance: NAPROXEN SODIUM
     Dosage: 375 MG, 2X/DAY
  13. SULFASALAZINE. [Concomitant]
     Active Substance: SULFASALAZINE
     Dosage: 2 DF, 2X/DAY
  14. PREDNISONE. [Concomitant]
     Active Substance: PREDNISONE
     Dosage: 40 MG, DAILY (TAPER OVER 5 WEEKS)
  15. PREDNISONE. [Concomitant]
     Active Substance: PREDNISONE
     Dosage: 2 DF, UNK
  16. NAPROXEN /00256202/ [Concomitant]
     Active Substance: NAPROXEN SODIUM
     Dosage: 500 MG, 2X/DAY
     Dates: start: 20170925
  17. SULFASALAZINE. [Concomitant]
     Active Substance: SULFASALAZINE
     Indication: RHEUMATOID ARTHRITIS
     Dosage: 1500 MG, 2X/DAY
  18. APO-PREDNISONE [Concomitant]
     Active Substance: PREDNISONE
     Dosage: 8 DF, 1X/DAY (FOR 1 WEEK WITH 3 REFILLS)
     Dates: start: 20171010
  19. APO-PREDNISONE [Concomitant]
     Active Substance: PREDNISONE
     Dosage: 5 MG, 1X/DAY (FOR 1 MONTH 30)
     Dates: start: 20180220
  20. PREDNISONE. [Concomitant]
     Active Substance: PREDNISONE
     Dosage: 4 DF, UNK
  21. ADVIL [Suspect]
     Active Substance: IBUPROFEN
     Dosage: 200 MG, UNK
     Route: 048
  22. SULFASALAZINE. [Concomitant]
     Active Substance: SULFASALAZINE
     Dosage: 1 DF, 2X/DAY (FOR 30 DAYS)
     Route: 048
     Dates: start: 20171122
  23. PREDNISONE. [Concomitant]
     Active Substance: PREDNISONE
     Dosage: 80 MG, UNK
     Route: 030
  24. PREDNISONE. [Concomitant]
     Active Substance: PREDNISONE
     Dosage: 3 DF, UNK
  25. NAPROXEN /00256202/ [Concomitant]
     Active Substance: NAPROXEN SODIUM
     Dosage: 250 MG, UNK
     Route: 048

REACTIONS (21)
  - Pain in extremity [Not Recovered/Not Resolved]
  - Drug-induced liver injury [Unknown]
  - Loss of consciousness [Unknown]
  - Cough [Recovered/Resolved]
  - Ear pain [Unknown]
  - Dizziness [Unknown]
  - Red blood cell sedimentation rate increased [Unknown]
  - Snoring [Unknown]
  - Grip strength decreased [Unknown]
  - Arthropod bite [Unknown]
  - Peripheral swelling [Not Recovered/Not Resolved]
  - Joint swelling [Unknown]
  - Fall [Unknown]
  - Movement disorder [Unknown]
  - Syncope [Unknown]
  - Insomnia [Unknown]
  - Nasopharyngitis [Recovered/Resolved]
  - Musculoskeletal stiffness [Unknown]
  - C-reactive protein increased [Unknown]
  - Soft tissue inflammation [Recovered/Resolved]
  - Pallor [Unknown]

NARRATIVE: CASE EVENT DATE: 20170911
